FAERS Safety Report 7348097-3 (Version None)
Quarter: 2011Q1

REPORT INFORMATION
  Report Type: 
  Country: None (occurrence: None)
  Receive Date: 20110311
  Receipt Date: 20110228
  Transmission Date: 20110831
  Serious: Yes (Other)
  Sender: FDA-Public Use
  Company Number: JP-PFIZER INC-2011027130

PATIENT
  Age: 63 Year
  Sex: Male

DRUGS (7)
  1. LIPITOR [Suspect]
     Indication: HYPERLIPIDAEMIA
     Dosage: UNK
     Route: 048
  2. ARTIST [Suspect]
     Indication: ANGINA PECTORIS
     Dosage: UNK
     Route: 048
  3. FLUITRAN [Suspect]
     Indication: HYPERTENSION
     Dosage: UNK
     Route: 048
  4. PANALDINE [Suspect]
     Indication: THROMBOSIS PROPHYLAXIS
     Dosage: UNK
     Route: 048
  5. ASPIRIN [Suspect]
     Indication: ANGINA PECTORIS
     Dosage: UNK
     Route: 048
  6. LANDEL [Suspect]
     Indication: HYPERTENSION
     Dosage: UNK
     Route: 048
  7. PARIET [Suspect]
     Indication: GASTRITIS
     Dosage: UNK
     Route: 048
     Dates: end: 20101229

REACTIONS (2)
  - LYMPHOMA [None]
  - ERYTHEMA [None]
